FAERS Safety Report 15181160 (Version 2)
Quarter: 2018Q3

REPORT INFORMATION
  Report Type: Spontaneous
  Country: US (occurrence: US)
  Receive Date: 20180723
  Receipt Date: 20180912
  Transmission Date: 20181010
  Serious: Yes (Other)
  Sender: FDA-Public Use
  Company Number: US-COOPERSURGICAL, INC.-US-2018CPS032507

PATIENT

DRUGS (1)
  1. PARAGARD T 380A [Suspect]
     Active Substance: COPPER
     Indication: CONTRACEPTION
     Dosage: UNK
     Route: 015
     Dates: start: 201611, end: 201706

REACTIONS (12)
  - Schizophrenia [Recovered/Resolved]
  - Toxicity to various agents [Recovered/Resolved]
  - Suicidal ideation [Recovered/Resolved]
  - Personality change [Recovered/Resolved]
  - Depression [Recovered/Resolved]
  - Cardiac murmur [Recovered/Resolved]
  - Anxiety [Recovered/Resolved]
  - Tremor [Recovered/Resolved]
  - Partner stress [Recovered/Resolved]
  - Palpitations [Recovered/Resolved]
  - Paranoia [Recovered/Resolved]
  - Dyspareunia [Recovered/Resolved]
